FAERS Safety Report 18909106 (Version 1)
Quarter: 2021Q1

REPORT INFORMATION
  Report Type: Spontaneous
  Country: US (occurrence: US)
  Receive Date: 20210217
  Receipt Date: 20210217
  Transmission Date: 20210420
  Serious: Yes (Hospitalization)
  Sender: FDA-Public Use
  Company Number: None

PATIENT
  Age: 82 Year
  Sex: Male
  Weight: 113.2 kg

DRUGS (1)
  1. CASIRIVIMAB/IMDEVIMAB [Suspect]
     Active Substance: CASIRIVIMAB\IMDEVIMAB
     Indication: COVID-19
     Dates: start: 20210216, end: 20210216

REACTIONS (5)
  - Heart rate increased [None]
  - Dyspnoea [None]
  - Oxygen saturation decreased [None]
  - Muscle tightness [None]
  - Lethargy [None]

NARRATIVE: CASE EVENT DATE: 20210216
